FAERS Safety Report 4308918-5 (Version None)
Quarter: 2004Q1

REPORT INFORMATION
  Report Type: 
  Country: None (occurrence: None)
  Receive Date: 20040227
  Receipt Date: 20040217
  Transmission Date: 20041129
  Serious: Yes (Hospitalization)
  Sender: FDA-Public Use
  Company Number: CA-JNJFOC-20040204801

PATIENT
  Sex: Male

DRUGS (1)
  1. RISPERDAL [Suspect]
     Dosage: 2.5 MG, 2 IN 1 DAY

REACTIONS (3)
  - DRUG TOXICITY [None]
  - MUSCLE RIGIDITY [None]
  - MUSCLE SPASTICITY [None]
